FAERS Safety Report 9367352 (Version 1)
Quarter: 2013Q2

REPORT INFORMATION
  Report Type: Spontaneous
  Country: DK (occurrence: FR)
  Receive Date: 20130625
  Receipt Date: 20130625
  Transmission Date: 20140414
  Serious: Yes (Other)
  Sender: FDA-Public Use
  Company Number: FR-FRI-1000046132

PATIENT
  Age: 84 Year
  Sex: Female

DRUGS (16)
  1. CITALOPRAM [Suspect]
     Indication: MAJOR DEPRESSION
     Dosage: 10 MG
     Dates: start: 20130510, end: 20130514
  2. CITALOPRAM [Suspect]
     Indication: MORBID THOUGHTS
  3. ESCITALOPRAM [Suspect]
     Indication: MAJOR DEPRESSION
     Dosage: 5 MG
     Dates: start: 20130428, end: 20130507
  4. ESCITALOPRAM [Suspect]
     Indication: MORBID THOUGHTS
  5. ZYPREXA [Concomitant]
     Dosage: 15 MG
     Dates: start: 20130426, end: 20130430
  6. METFORMINE [Concomitant]
  7. SERESTA [Concomitant]
  8. XELEVIA [Concomitant]
     Route: 048
  9. NOVONORM [Concomitant]
     Route: 048
  10. COVERSYL [Concomitant]
     Route: 048
  11. FENOFIBRATE [Concomitant]
  12. KARDEGIC [Concomitant]
     Route: 048
  13. HAVLANE [Concomitant]
  14. CROMEDIL [Concomitant]
  15. MODOPAR [Concomitant]
     Route: 048
  16. LAMALINE [Concomitant]

REACTIONS (2)
  - Malaise [Recovered/Resolved]
  - Petit mal epilepsy [Recovered/Resolved]
